FAERS Safety Report 9196166 (Version 2)
Quarter: 2013Q2

REPORT INFORMATION
  Report Type: Spontaneous
  Country: US (occurrence: US)
  Receive Date: 20130328
  Receipt Date: 20130425
  Transmission Date: 20140414
  Serious: Yes (Death, Hospitalization)
  Sender: FDA-Public Use
  Company Number: US-JNJFOC-20130312134

PATIENT
  Age: 44 Year
  Sex: Male
  Weight: 81.65 kg

DRUGS (3)
  1. DURAGESIC [Suspect]
     Indication: PAIN
     Route: 062
     Dates: start: 20130228
  2. DURAGESIC [Suspect]
     Indication: PAIN
     Dosage: TWO 25UG/HR PATCH
     Route: 062
     Dates: start: 20130225, end: 20130228
  3. BACLOFEN [Concomitant]
     Indication: HYPERTONIA
     Route: 065

REACTIONS (4)
  - Pneumonia aspiration [Fatal]
  - Respiratory distress [Not Recovered/Not Resolved]
  - Wrong technique in drug usage process [Recovered/Resolved]
  - Product quality issue [Unknown]
